FAERS Safety Report 8369800-X (Version None)
Quarter: 2012Q2

REPORT INFORMATION
  Report Type: 
  Country: None (occurrence: None)
  Receive Date: 20120518
  Receipt Date: 20120508
  Transmission Date: 20120825
  Serious: Yes (Hospitalization)
  Sender: FDA-Public Use
  Company Number: US-SANOFI-AVENTIS-2012SA032722

PATIENT
  Age: 59 Year
  Sex: Female
  Weight: 74 kg

DRUGS (2)
  1. PLAVIX [Suspect]
     Indication: CAROTID ARTERY BYPASS
     Dates: start: 20120406
  2. ANTIHYPERTENSIVES [Concomitant]

REACTIONS (5)
  - FOREIGN BODY [None]
  - DYSPHAGIA [None]
  - BLOOD PRESSURE SYSTOLIC DECREASED [None]
  - PHARYNGEAL HYPOAESTHESIA [None]
  - VOMITING [None]
